FAERS Safety Report 4601356-7 (Version None)
Quarter: 2005Q1

REPORT INFORMATION
  Report Type: 
  Country: None (occurrence: None)
  Receive Date: 20050308
  Receipt Date: 20050224
  Transmission Date: 20050727
  Serious: Yes (Hospitalization)
  Sender: FDA-Public Use
  Company Number: BEWYE459825FEB05

PATIENT
  Sex: Female

DRUGS (3)
  1. ENBREL [Suspect]
     Indication: RELAPSING POLYCHONDRITIS
     Dosage: 25 MG TWICE WEEKLY
     Route: 058
  2. METHOTREXATE [Concomitant]
  3. CORTISONE [Concomitant]

REACTIONS (1)
  - SYSTEMIC LUPUS ERYTHEMATOSUS RASH [None]
